FAERS Safety Report 9949718 (Version 1)
Quarter: 2014Q1

REPORT INFORMATION
  Report Type: Report from Study
  Country: US (occurrence: US)
  Receive Date: 20140304
  Receipt Date: 20140304
  Transmission Date: 20141002
  Serious: No
  Sender: FDA-Public Use
  Company Number: US-ABBVIE-13P-163-1070017-00

PATIENT
  Sex: Male

DRUGS (1)
  1. HUMIRA [Suspect]
     Indication: RHEUMATOID ARTHRITIS
     Dosage: 40MG/UD
     Dates: start: 201302

REACTIONS (5)
  - Joint stiffness [Unknown]
  - Pain [Unknown]
  - Impaired work ability [Unknown]
  - Mobility decreased [Unknown]
  - Pain in extremity [Unknown]
